FAERS Safety Report 5586175-X (Version None)
Quarter: 2008Q1

REPORT INFORMATION
  Report Type: 
  Country: None (occurrence: None)
  Receive Date: 20080104
  Receipt Date: 20071227
  Transmission Date: 20080703
  Serious: Yes (Hospitalization)
  Sender: FDA-Public Use
  Company Number: 2007BI027312

PATIENT
  Age: 45 Year
  Sex: Female

DRUGS (3)
  1. AVONEX [Suspect]
     Indication: MULTIPLE SCLEROSIS
     Dosage: 30 UG;QW;IM; 15 UG;QW;IM; 22.5 UG;QW;IM
     Route: 030
     Dates: end: 20071201
  2. AVONEX [Suspect]
     Indication: MULTIPLE SCLEROSIS
     Dosage: 30 UG;QW;IM; 15 UG;QW;IM; 22.5 UG;QW;IM
     Route: 030
     Dates: start: 20070917
  3. AVONEX [Suspect]
     Indication: MULTIPLE SCLEROSIS
     Dosage: 30 UG;QW;IM; 15 UG;QW;IM; 22.5 UG;QW;IM
     Route: 030
     Dates: start: 20071201

REACTIONS (2)
  - INTRACRANIAL HYPOTENSION [None]
  - PROCEDURAL COMPLICATION [None]
